FAERS Safety Report 4412999-8 (Version None)
Quarter: 2004Q3

REPORT INFORMATION
  Report Type: 
  Country: None (occurrence: None)
  Receive Date: 20040802
  Receipt Date: 20040412
  Transmission Date: 20050211
  Serious: No
  Sender: FDA-Public Use
  Company Number: US-GLAXOSMITHKLINE-A0506539A

PATIENT
  Age: 9 Month
  Sex: Male
  Weight: 8.9 kg

DRUGS (17)
  1. ZANTAC [Suspect]
     Indication: PROPHYLAXIS
     Dosage: 90MG SINGLE DOSE
     Route: 042
     Dates: start: 20040410, end: 20040410
  2. ATROPINE [Concomitant]
  3. M.V.I. [Concomitant]
  4. EPOGEN [Concomitant]
  5. FLUCONAZOLE [Concomitant]
  6. ZYVOX [Concomitant]
  7. AQUAPHOR [Concomitant]
  8. PRIMAXIN [Concomitant]
  9. CHLORAL HYDRATE [Concomitant]
  10. MIDAZOLAM [Concomitant]
  11. MORPHINE [Concomitant]
  12. IBUPROFEN [Concomitant]
  13. DIPHENHYDRAMINE HCL [Concomitant]
  14. DESITIN [Concomitant]
  15. POLYSPORIN [Concomitant]
  16. SANTYL [Concomitant]
  17. SULFAMYLON [Concomitant]

REACTIONS (4)
  - IRRITABILITY [None]
  - MEDICATION ERROR [None]
  - PHARMACEUTICAL PRODUCT COMPLAINT [None]
  - SLEEP DISORDER [None]
